FAERS Safety Report 17399722 (Version 3)
Quarter: 2020Q2

REPORT INFORMATION
  Report Type: Spontaneous
  Country: US (occurrence: US)
  Receive Date: 20200211
  Receipt Date: 20200402
  Transmission Date: 20200713
  Serious: Yes (Other)
  Sender: FDA-Public Use
  Company Number: US-009507513-2002USA000226

PATIENT
  Age: 33 Year
  Sex: Female

DRUGS (6)
  1. ASMANEX [Suspect]
     Active Substance: MOMETASONE FUROATE
     Dosage: STRENGTH: 60 DOSES; INHALE 1 PUFF 2 TIMES A DAY
     Route: 055
     Dates: start: 20200129
  2. PROAIR HFA [Concomitant]
     Active Substance: ALBUTEROL SULFATE
     Dosage: UNK
  3. LEVOTHYROXINE SODIUM. [Concomitant]
     Active Substance: LEVOTHYROXINE SODIUM
     Dosage: UNK
  4. ASMANEX [Suspect]
     Active Substance: MOMETASONE FUROATE
     Dosage: STRENGTH: 60 DOSES; INHALE 1 PUFF 2 TIMES A DAY
     Route: 055
     Dates: start: 20191119
  5. SINGULAIR [Concomitant]
     Active Substance: MONTELUKAST SODIUM
     Dosage: UNK
  6. ASMANEX [Suspect]
     Active Substance: MOMETASONE FUROATE
     Indication: ASTHMA
     Dosage: STRENGTH: 60 DOSES; INHALE 1 PUFF 2 TIMES A DAY
     Route: 055
     Dates: start: 201608

REACTIONS (11)
  - Allergy to animal [Not Recovered/Not Resolved]
  - Product contamination microbial [Unknown]
  - Throat tightness [Recovered/Resolved]
  - Breast pain [Unknown]
  - Dyspnoea [Recovered/Resolved]
  - Dyspnoea paroxysmal nocturnal [Unknown]
  - Asthma [Recovered/Resolved]
  - Cough [Recovered/Resolved]
  - Mycotic allergy [Not Recovered/Not Resolved]
  - Wheezing [Recovered/Resolved]
  - Poor quality device used [Unknown]

NARRATIVE: CASE EVENT DATE: 201911
